FAERS Safety Report 15316290 (Version 1)
Quarter: 2018Q3

REPORT INFORMATION
  Report Type: Spontaneous
  Country: US (occurrence: US)
  Receive Date: 20180824
  Receipt Date: 20180824
  Transmission Date: 20181010
  Serious: Yes (Hospitalization)
  Sender: FDA-Public Use
  Company Number: US-OTSUKA-2018_023338

PATIENT
  Age: 49 Year
  Sex: Male

DRUGS (2)
  1. ABILIFY [Suspect]
     Active Substance: ARIPIPRAZOLE
     Indication: BIPOLAR DISORDER
     Dosage: 20 MG, QD
     Route: 065
     Dates: start: 201304, end: 201603
  2. ABILIFY [Suspect]
     Active Substance: ARIPIPRAZOLE
     Indication: MAJOR DEPRESSION

REACTIONS (8)
  - Obsessive-compulsive disorder [Unknown]
  - Gambling disorder [Recovered/Resolved]
  - Economic problem [Unknown]
  - Compulsive shopping [Recovered/Resolved]
  - Compulsive sexual behaviour [Recovered/Resolved]
  - Substance abuse [Unknown]
  - Mental disorder [Unknown]
  - Alcohol abuse [Unknown]

NARRATIVE: CASE EVENT DATE: 20151126
